FAERS Safety Report 8777774 (Version 1)
Quarter: 2012Q4

REPORT INFORMATION
  Report Type: Report from Study
  Country: US (occurrence: US)
  Receive Date: 20120912
  Receipt Date: 20120912
  Transmission Date: 20130627
  Serious: No
  Sender: FDA-Public Use
  Company Number: US-VERTEX PHARMACEUTICAL INC.-AE-2012-004810

PATIENT
  Age: 55 Year
  Sex: Female
  Weight: 52.27 kg

DRUGS (22)
  1. INCIVEK [Suspect]
     Indication: HEPATITIS C
     Route: 048
     Dates: start: 20120204
  2. RIBAVIRIN [Concomitant]
     Indication: HEPATITIS C
     Route: 048
     Dates: start: 20120204, end: 20120319
  3. RIBAVIRIN [Concomitant]
     Route: 048
     Dates: start: 20120319
  4. PEGASYS [Concomitant]
     Indication: HEPATITIS C
     Route: 058
     Dates: start: 20120204
  5. HYDROXYZINE HCL SOL [Concomitant]
  6. FLUOCINONIDE [Concomitant]
  7. ZOLOFT [Concomitant]
  8. ATARAX [Concomitant]
  9. GOLD BOND LOT SOOTHING [Concomitant]
  10. VITAMIN D [Concomitant]
  11. VITAMIN C [Concomitant]
  12. VITAMIN E BAR [Concomitant]
  13. LACTULOSE [Concomitant]
  14. PRISTIQ [Concomitant]
  15. ESTRADIOL DIS [Concomitant]
  16. FOLIC ACID [Concomitant]
  17. B COMPLEX [Concomitant]
  18. OMEPRAZOLE [Concomitant]
  19. DIAZEPAM [Concomitant]
  20. CELEXA [Concomitant]
  21. XIFAXAN [Concomitant]
  22. REMERON [Concomitant]

REACTIONS (15)
  - Decreased appetite [Unknown]
  - Oedema peripheral [Not Recovered/Not Resolved]
  - Fatigue [Unknown]
  - Rash [Not Recovered/Not Resolved]
  - Anaemia [Unknown]
  - Platelet count decreased [Unknown]
  - Nausea [Unknown]
  - Pruritus [Not Recovered/Not Resolved]
  - Depression [Unknown]
  - Anxiety [Unknown]
  - Injection site rash [Unknown]
  - Injection site pruritus [Unknown]
  - Irritability [Unknown]
  - Agitation [Unknown]
  - Headache [Unknown]
